FAERS Safety Report 4331923-X (Version None)
Quarter: 2004Q2

REPORT INFORMATION
  Report Type: 
  Country: None (occurrence: None)
  Receive Date: 20040405
  Receipt Date: 20030423
  Transmission Date: 20050107
  Serious: No
  Sender: FDA-Public Use
  Company Number: US-GLAXOSMITHKLINE-A0405951A

PATIENT
  Age: 74 Year
  Sex: Male

DRUGS (6)
  1. SEREVENT [Suspect]
     Indication: EMPHYSEMA
     Dosage: 2PUFF TWICE PER DAY
     Route: 055
     Dates: start: 19990101, end: 20030419
  2. GLUCOPHAGE [Concomitant]
  3. METOPROLOL [Concomitant]
  4. LOPRESSOR [Concomitant]
  5. ZETIA [Concomitant]
  6. ASPIRIN [Concomitant]

REACTIONS (1)
  - EPISTAXIS [None]
